FAERS Safety Report 8285938-X (Version None)
Quarter: 2012Q2

REPORT INFORMATION
  Report Type: 
  Country: None (occurrence: None)
  Receive Date: 20120415
  Receipt Date: 20120402
  Transmission Date: 20120825
  Serious: Yes (Hospitalization)
  Sender: FDA-Public Use
  Company Number: GB-MYLANLABS-2009S1010356

PATIENT
  Age: 36 Year
  Sex: Female

DRUGS (15)
  1. TRIMETHOPRIM [Suspect]
     Indication: URINARY TRACT INFECTION
  2. ZOPICLONE [Suspect]
     Indication: PRODUCT USED FOR UNKNOWN INDICATION
  3. CLOZARIL [Suspect]
     Route: 048
     Dates: start: 20050519
  4. ARIPIPRAZOLE [Concomitant]
     Indication: PRODUCT USED FOR UNKNOWN INDICATION
  5. RAMIPRIL [Concomitant]
     Indication: HYPERTENSION
     Route: 048
  6. CLOZARIL [Suspect]
     Indication: SCHIZOPHRENIA
     Route: 048
     Dates: start: 20060605, end: 20060713
  7. FUROSEMIDE [Concomitant]
     Indication: HYPERTENSION
  8. FERROUS SULFATE TAB [Suspect]
     Indication: PRODUCT USED FOR UNKNOWN INDICATION
     Route: 048
  9. PERINDOPRIL ERBUMINE [Suspect]
     Indication: PRODUCT USED FOR UNKNOWN INDICATION
     Route: 048
  10. LANSOPRAZOLE [Suspect]
     Indication: PRODUCT USED FOR UNKNOWN INDICATION
  11. DIAZEPAM [Suspect]
     Indication: PRODUCT USED FOR UNKNOWN INDICATION
  12. BENDROFLUAZIDE [Concomitant]
     Indication: HYPERTENSION
  13. LACTULOSE [Suspect]
     Indication: PRODUCT USED FOR UNKNOWN INDICATION
  14. FOLIC ACID [Suspect]
     Indication: PRODUCT USED FOR UNKNOWN INDICATION
     Route: 048
  15. ATORVASTATIN [Concomitant]
     Indication: PRODUCT USED FOR UNKNOWN INDICATION

REACTIONS (15)
  - CARDIAC MURMUR [None]
  - DIABETES MELLITUS [None]
  - PYREXIA [None]
  - CONSTIPATION [None]
  - IRON DEFICIENCY ANAEMIA [None]
  - THROMBOCYTOSIS [None]
  - HIATUS HERNIA [None]
  - URINARY TRACT INFECTION [None]
  - BODY MASS INDEX DECREASED [None]
  - PHYSICAL ASSAULT [None]
  - SKIN DISORDER [None]
  - MALAISE [None]
  - SINUS TACHYCARDIA [None]
  - ABDOMINAL TENDERNESS [None]
  - STAPHYLOCOCCAL INFECTION [None]
